FAERS Safety Report 4898232-1 (Version None)
Quarter: 2006Q1

REPORT INFORMATION
  Report Type: 
  Country: None (occurrence: None)
  Receive Date: 20060127
  Receipt Date: 20060106
  Transmission Date: 20060701
  Serious: Yes (Other)
  Sender: FDA-Public Use
  Company Number: US_0507120041

PATIENT
  Age: 74 Year
  Sex: 0
  Weight: 74.8 kg

DRUGS (27)
  1. ZYPREXA [Suspect]
     Indication: DEMENTIA
     Dosage: 2.5 MG, EACH EVENING, ORAL
     Route: 048
     Dates: start: 20040101, end: 20040615
  2. PANCREASE (PANCRELIPASE) [Concomitant]
  3. NEURONTIN [Concomitant]
  4. GABAPENTIN [Concomitant]
  5. SYNTHROID [Concomitant]
  6. ZOLOFT [Concomitant]
  7. K-DUR 10 [Concomitant]
  8. LIPITOR [Concomitant]
  9. TOPROL-XL [Concomitant]
  10. COZAAR [Concomitant]
  11. FUROSEMIDE [Concomitant]
  12. MIRAPEX [Concomitant]
  13. NITROGLYCERIN (NITROGLYCERIN UNKNOWN FORMULATION) [Concomitant]
  14. DARVOCET-N (PROPOXYPHENE NAPSYLATE UNKNOWN FORMULATION) [Concomitant]
  15. COUMADIN [Concomitant]
  16. VITAMIN B COMPLEX (BECOTIN) (VITAMIN B COMPLEX (BECOTIN) UNKNOWN FORMU [Concomitant]
  17. OSCAL (CALCIUM CARBONATE) [Concomitant]
  18. IRON (IRON) [Concomitant]
  19. COMBIVENT    /GFR/ (IPRATROPIUM BROMIDE, SALBUTAMOL SULFATE) [Concomitant]
  20. ADVAIR DISKUS 100/50 [Concomitant]
  21. ATROVENT [Concomitant]
  22. XOPENEX [Concomitant]
  23. SINGULAIR ^MERCK^ (MONTELUKAST SODIUM) [Concomitant]
  24. ARICEPT         /JPN/ (DONEPEZIL HYDROCHLORIDE) [Concomitant]
  25. ZANAFLEX [Concomitant]
  26. LASIX [Concomitant]
  27. LEVAQUIN [Concomitant]

REACTIONS (3)
  - DIABETES MELLITUS [None]
  - NEUROPATHY PERIPHERAL [None]
  - PNEUMONIA [None]
